FAERS Safety Report 7322833-4 (Version None)
Quarter: 2011Q1

REPORT INFORMATION
  Report Type: 
  Country: None (occurrence: None)
  Receive Date: 20110217
  Receipt Date: 20110207
  Transmission Date: 20110831
  Serious: Yes (Hospitalization)
  Sender: FDA-Public Use
  Company Number: 026929

PATIENT
  Sex: Female

DRUGS (10)
  1. TRANSIPEG /01618701/ [Concomitant]
  2. KEPPRA [Suspect]
     Indication: EPILEPSY
     Dosage: (500 MG BID ORAL)
     Route: 048
     Dates: start: 20100916, end: 20100922
  3. DEPAKENE [Suspect]
     Indication: EPILEPSY
     Dosage: (500 MG BID ORAL)
     Route: 048
     Dates: start: 20100825
  4. FUNGIZONE [Concomitant]
  5. EDUCTYL [Concomitant]
  6. LACOSAMIDE [Concomitant]
  7. PERINDOPRIL [Concomitant]
  8. DAFALGAN ODIS [Concomitant]
  9. FLECAINE [Concomitant]
  10. STABLON /00956301/ [Concomitant]

REACTIONS (4)
  - CONFUSIONAL STATE [None]
  - FALL [None]
  - BALANCE DISORDER [None]
  - MALAISE [None]
